FAERS Safety Report 7578634-5 (Version None)
Quarter: 2011Q2

REPORT INFORMATION
  Report Type: 
  Country: None (occurrence: None)
  Receive Date: 20110628
  Receipt Date: 20110621
  Transmission Date: 20111010
  Serious: Yes (Life-Threatening, Hospitalization)
  Sender: FDA-Public Use
  Company Number: FR-ALLERGAN-1108433US

PATIENT
  Age: 11 Day
  Sex: Female

DRUGS (1)
  1. ALPHAGAN [Suspect]
     Indication: PRODUCT USED FOR UNKNOWN INDICATION
     Dosage: 3 GTT, SINGLE
     Dates: start: 20110502

REACTIONS (6)
  - APNOEA [None]
  - WRONG DRUG ADMINISTERED [None]
  - PALLOR [None]
  - MIOSIS [None]
  - HYPOTONIA [None]
  - COMA [None]
